FAERS Safety Report 9534552 (Version 6)
Quarter: 2024Q4

REPORT INFORMATION
  Report Type: Spontaneous
  Country: US (occurrence: US)
  Receive Date: 20130918
  Receipt Date: 20241128
  Transmission Date: 20250115
  Serious: Yes (Other)
  Sender: JOHNSON AND JOHNSON
  Company Number: US-JNJFOC-20130602660

PATIENT
  Age: 15 Year
  Sex: Male

DRUGS (3)
  1. RISPERIDONE [Suspect]
     Active Substance: RISPERIDONE
     Indication: Autism spectrum disorder
     Route: 048
  2. RISPERIDONE [Suspect]
     Active Substance: RISPERIDONE
     Indication: Psychotic disorder
  3. RISPERIDONE [Suspect]
     Active Substance: RISPERIDONE
     Indication: Behaviour disorder

REACTIONS (7)
  - Bipolar disorder [Unknown]
  - Tardive dyskinesia [Unknown]
  - Nervous system disorder [Unknown]
  - Breast tenderness [Unknown]
  - Gynaecomastia [Unknown]
  - Emotional distress [Unknown]
  - Obesity [Unknown]
